FAERS Safety Report 9613989 (Version 1)
Quarter: 2013Q4

REPORT INFORMATION
  Report Type: Report from Study
  Country: GB (occurrence: GB)
  Receive Date: 20131011
  Receipt Date: 20131011
  Transmission Date: 20140711
  Serious: Yes (Other)
  Sender: FDA-Public Use
  Company Number: GB-AMGEN-GBRCT2013071361

PATIENT
  Age: 31 Year
  Sex: Female
  Weight: 66 kg

DRUGS (3)
  1. ETANERCEPT [Suspect]
     Indication: PRODUCT USED FOR UNKNOWN INDICATION
     Dosage: 50 MG, QWK
     Route: 065
     Dates: start: 20090302
  2. FERROUS SULPHATE                   /00023503/ [Concomitant]
     Dosage: UNK
     Dates: start: 20110712
  3. GLICLAZIDE [Concomitant]
     Dosage: UNK
     Dates: start: 20110411

REACTIONS (1)
  - Squamous cell carcinoma of skin [Recovered/Resolved]
